FAERS Safety Report 5377656-2 (Version None)
Quarter: 2007Q3

REPORT INFORMATION
  Report Type: 
  Country: None (occurrence: None)
  Receive Date: 20070703
  Receipt Date: 20070622
  Transmission Date: 20080115
  Serious: Yes (Other)
  Sender: FDA-Public Use
  Company Number: US-PFIZER INC-2007037971

PATIENT
  Sex: Female
  Weight: 80.7 kg

DRUGS (6)
  1. CHANTIX [Suspect]
     Indication: SMOKING CESSATION THERAPY
     Route: 048
  2. CHANTIX [Suspect]
     Indication: TOBACCO ABUSE
  3. ANAESTHETICS [Suspect]
     Indication: SURGERY
  4. FLEXERIL [Concomitant]
     Route: 048
  5. NAPROSYN [Concomitant]
     Route: 048
  6. MULTI-VITAMINS [Concomitant]
     Route: 048

REACTIONS (4)
  - MUTISM [None]
  - NAUSEA [None]
  - PAIN [None]
  - SPINAL OPERATION [None]
